FAERS Safety Report 17676719 (Version 1)
Quarter: 2020Q2

REPORT INFORMATION
  Report Type: Spontaneous
  Country: US (occurrence: US)
  Receive Date: 20200416
  Receipt Date: 20200416
  Transmission Date: 20200714
  Serious: Yes (Other)
  Sender: FDA-Public Use
  Company Number: None

PATIENT
  Age: 32 Year
  Sex: Female
  Weight: 79 kg

DRUGS (3)
  1. ESTRADIOL 1 MG TABLETS [Concomitant]
  2. MAVYRET [Suspect]
     Active Substance: GLECAPREVIR\PIBRENTASVIR
     Indication: CHRONIC HEPATITIS C
     Route: 048
     Dates: start: 20200319
  3. TESTOSTERONE ENANTHATE SOLUTION [Concomitant]

REACTIONS (6)
  - Anxiety [None]
  - Blood oestrogen increased [None]
  - Blood testosterone increased [None]
  - Hyperhidrosis [None]
  - Headache [None]
  - Fatigue [None]

NARRATIVE: CASE EVENT DATE: 20200409
